FAERS Safety Report 6184408-2 (Version None)
Quarter: 2009Q2

REPORT INFORMATION
  Report Type: 
  Country: None (occurrence: None)
  Receive Date: 20090508
  Receipt Date: 20090506
  Transmission Date: 20091009
  Serious: Yes (Life-Threatening, Hospitalization)
  Sender: FDA-Public Use
  Company Number: B0572129A

PATIENT
  Sex: Female
  Weight: 51 kg

DRUGS (12)
  1. ARIXTRA [Suspect]
     Indication: PULMONARY EMBOLISM
     Dosage: 7.5MG PER DAY
     Route: 058
     Dates: start: 20090130, end: 20090203
  2. PREVISCAN [Suspect]
     Indication: PULMONARY EMBOLISM
     Dosage: 10MG PER DAY
     Route: 048
     Dates: start: 20090130, end: 20090205
  3. DEROXAT [Concomitant]
     Dosage: 10MG PER DAY
     Route: 048
  4. NEXIUM [Concomitant]
     Dosage: 40MG PER DAY
     Route: 065
     Dates: start: 20090130
  5. REMINYL [Concomitant]
     Dosage: 2ML TWICE PER DAY
     Route: 065
     Dates: end: 20090130
  6. CACIT D3 [Concomitant]
     Dosage: 1UNIT PER DAY
     Route: 065
  7. DAFALGAN [Concomitant]
     Dosage: 1G THREE TIMES PER DAY
     Route: 065
  8. DUPHALAC [Concomitant]
     Dosage: 2UNIT PER DAY
     Route: 065
  9. EQUANIL [Concomitant]
     Dosage: 1G PER DAY
     Route: 065
  10. FORLAX [Concomitant]
     Dosage: 10G TWICE PER DAY
     Route: 065
  11. FUMAFER [Concomitant]
     Dosage: 33MG IN THE MORNING
     Route: 065
  12. PLAVIX [Concomitant]
     Dosage: 75MG PER DAY
     Route: 065
     Dates: end: 20090130

REACTIONS (6)
  - HYPOTENSION [None]
  - MALAISE [None]
  - RED BLOOD CELL COUNT DECREASED [None]
  - SHOCK HAEMORRHAGIC [None]
  - SPONTANEOUS HAEMATOMA [None]
  - TACHYCARDIA [None]
